FAERS Safety Report 7164725-X (Version None)
Quarter: 2010Q4

REPORT INFORMATION
  Report Type: 
  Country: None (occurrence: None)
  Receive Date: 20101215
  Receipt Date: 20101207
  Transmission Date: 20110411
  Serious: Yes (Hospitalization, Other)
  Sender: FDA-Public Use
  Company Number: FR-PFIZER INC-2010165535

PATIENT
  Age: 47 Year
  Sex: Male

DRUGS (2)
  1. ZOLOFT [Suspect]
     Dosage: 50 MG, 2X/DAY
     Route: 048
  2. VALIUM [Concomitant]
     Dosage: 10 MG, 2X/DAY
     Route: 048

REACTIONS (3)
  - CHOLESTASIS [None]
  - HYPONATRAEMIA [None]
  - SKIN EROSION [None]
